FAERS Safety Report 10166484 (Version 1)
Quarter: 2014Q2

REPORT INFORMATION
  Report Type: Spontaneous
  Country: US (occurrence: US)
  Receive Date: 20140512
  Receipt Date: 20140512
  Transmission Date: 20141212
  Serious: No
  Sender: FDA-Public Use
  Company Number: US-MYLANLABS-2014S1003483

PATIENT
  Sex: Male

DRUGS (7)
  1. MORPHINE SULFATE EXTENDED-RELEASE TABLETS [Suspect]
     Indication: PAIN
     Route: 048
     Dates: start: 201401
  2. AMLODIPINE [Concomitant]
  3. RAMIPRIL [Concomitant]
  4. ACIPHEX [Concomitant]
  5. OXYCODONE [Concomitant]
  6. ALEVE [Concomitant]
  7. VITAMINS [Concomitant]

REACTIONS (2)
  - Oedema peripheral [Not Recovered/Not Resolved]
  - Abdominal distension [Not Recovered/Not Resolved]
